FAERS Safety Report 25319765 (Version 1)
Quarter: 2025Q2

REPORT INFORMATION
  Report Type: Spontaneous
  Country: CN (occurrence: CN)
  Receive Date: 20250515
  Receipt Date: 20250515
  Transmission Date: 20250717
  Serious: Yes (Other)
  Sender: ELI LILLY AND COMPANY
  Company Number: CN-Merck Healthcare KGaA-2025022966

PATIENT
  Age: 61 Year
  Sex: Male
  Weight: 65 kg

DRUGS (8)
  1. ERBITUX [Suspect]
     Active Substance: CETUXIMAB
     Indication: Rectal cancer metastatic
     Route: 041
     Dates: start: 20241206, end: 20241206
  2. IRINOTECAN HYDROCHLORIDE [Suspect]
     Active Substance: IRINOTECAN HYDROCHLORIDE
     Indication: Rectal cancer metastatic
     Dosage: 10 ML, DAILY
     Route: 041
     Dates: start: 20241206, end: 20241206
  3. FLUOROURACIL [Suspect]
     Active Substance: FLUOROURACIL
     Indication: Rectal cancer metastatic
     Dosage: 3.5 G, DAILY
     Route: 041
     Dates: start: 20241206, end: 20241206
  4. TORIPALIMAB [Suspect]
     Active Substance: TORIPALIMAB
     Indication: Rectal cancer metastatic
     Dosage: 160 MG, DAILY
     Route: 041
     Dates: start: 20241206, end: 20241206
  5. SODIUM CHLORIDE [Concomitant]
     Active Substance: SODIUM CHLORIDE
     Indication: Medication dilution
     Dosage: 100 MG, DAILY
     Route: 041
     Dates: start: 20241206, end: 20241206
  6. SODIUM CHLORIDE [Concomitant]
     Active Substance: SODIUM CHLORIDE
     Dosage: 250 MG, DAILY
     Route: 041
     Dates: start: 20241206, end: 20241206
  7. SODIUM CHLORIDE [Concomitant]
     Active Substance: SODIUM CHLORIDE
     Dosage: 250 MG, DAILY
     Route: 041
     Dates: start: 20241206, end: 20241206
  8. SODIUM CHLORIDE [Concomitant]
     Active Substance: SODIUM CHLORIDE
     Dosage: 90 MG, DAILY
     Route: 041
     Dates: start: 20241206, end: 20241206

REACTIONS (2)
  - Neutrophil count decreased [Recovering/Resolving]
  - White blood cell count decreased [Recovering/Resolving]

NARRATIVE: CASE EVENT DATE: 20241213
